FAERS Safety Report 21385556 (Version 3)
Quarter: 2022Q4

REPORT INFORMATION
  Report Type: Other
  Country: US (occurrence: None)
  Receive Date: 20220928
  Receipt Date: 20221003
  Transmission Date: 20230112
  Serious: No
  Sender: FDA-Public Use
  Company Number: US-ROCHE-3188731

PATIENT
  Sex: Female

DRUGS (1)
  1. OCREVUS [Suspect]
     Active Substance: OCRELIZUMAB
     Indication: Relapsing multiple sclerosis
     Dosage: 600MG FOR EVERY 6 MONTHS. DATE OF SERVICE: 09/2022
     Route: 042
     Dates: start: 20180814

REACTIONS (1)
  - COVID-19 [Recovered/Resolved]
